FAERS Safety Report 12120164 (Version 3)
Quarter: 2016Q4

REPORT INFORMATION
  Report Type: Spontaneous
  Country: US (occurrence: US)
  Receive Date: 20160226
  Receipt Date: 20161222
  Transmission Date: 20170206
  Serious: Yes (Other)
  Sender: FDA-Public Use
  Company Number: US-PFIZER INC-2015276676

PATIENT
  Age: 72 Year
  Sex: Female
  Weight: 66 kg

DRUGS (13)
  1. ASPIRIN. [Concomitant]
     Active Substance: ASPIRIN
     Dosage: 81 MG, 1X/DAY
  2. INLYTA [Suspect]
     Active Substance: AXITINIB
     Indication: METASTASES TO KIDNEY
     Dosage: 4 MG, 2X/DAY (1MG TABLET, 4 TABLETS TWICE A DAY)
     Route: 048
     Dates: start: 20161208
  3. COUMADIN [Suspect]
     Active Substance: WARFARIN SODIUM
     Dosage: 1 MG, UNK
     Route: 048
  4. NIFEDIPINE. [Concomitant]
     Active Substance: NIFEDIPINE
     Dosage: 30 MG, 1X/DAY
  5. INLYTA [Suspect]
     Active Substance: AXITINIB
     Indication: RENAL CELL CARCINOMA
     Dosage: 4 MG, 2X/DAY (1MG TABLET, 4 TABLETS TWICE A DAY)
     Route: 048
  6. CARVEDILOL. [Concomitant]
     Active Substance: CARVEDILOL
     Indication: CARDIAC DISORDER
     Dosage: 3.125 MG, 2X/DAY (ONE IN THE AM AND ONE IN THE PM)
  7. INLYTA [Suspect]
     Active Substance: AXITINIB
     Indication: RENAL CANCER
  8. NORCO [Concomitant]
     Active Substance: ACETAMINOPHEN\HYDROCODONE BITARTRATE
     Indication: PAIN
     Dosage: UNK, AS NEEDED
  9. COUMADIN [Suspect]
     Active Substance: WARFARIN SODIUM
     Indication: ANTICOAGULANT THERAPY
     Dosage: 4MG, 2X/DAY (4 MG IN MORNING AND 4 MG IN NIGHT) TOTAL 8MG
     Route: 048
  10. FUROSEMIDE. [Concomitant]
     Active Substance: FUROSEMIDE
     Dosage: 20 MG, 1X/DAY
  11. ROPINIROLE. [Concomitant]
     Active Substance: ROPINIROLE
     Dosage: 5 MG, 3X/DAY
  12. INLYTA [Suspect]
     Active Substance: AXITINIB
     Indication: RENAL CELL CARCINOMA STAGE IV
     Dosage: 1 DF, 2X/DAY
     Route: 048
  13. ALLEGRA [Concomitant]
     Active Substance: FEXOFENADINE HYDROCHLORIDE
     Indication: SINUS DISORDER
     Dosage: 180 MG, 1X/DAY

REACTIONS (6)
  - Blister [Unknown]
  - Eating disorder [Unknown]
  - Skin exfoliation [Unknown]
  - Ageusia [Unknown]
  - Thrombosis [Recovered/Resolved]
  - Oral mucosal blistering [Unknown]
